FAERS Safety Report 6981249-0 (Version None)
Quarter: 2010Q3

REPORT INFORMATION
  Report Type: 
  Country: None (occurrence: None)
  Receive Date: 20100914
  Receipt Date: 20100906
  Transmission Date: 20110219
  Serious: Yes (Hospitalization, Other)
  Sender: FDA-Public Use
  Company Number: BR-ABBOTT-10P-020-0669017-00

PATIENT
  Sex: Female
  Weight: 51 kg

DRUGS (2)
  1. HUMIRA [Suspect]
     Indication: RHEUMATOID ARTHRITIS
     Route: 058
     Dates: end: 20100601
  2. LOSARTAN POTASSIUM [Concomitant]
     Indication: HYPERTENSION
     Dosage: 2 IN 1 D, 100 MG DAILY DOSE
     Route: 048

REACTIONS (4)
  - CORONARY ARTERY OCCLUSION [None]
  - DYSPHONIA [None]
  - NASOPHARYNGITIS [None]
  - OROPHARYNGEAL PAIN [None]
